FAERS Safety Report 4855861-9 (Version None)
Quarter: 2005Q4

REPORT INFORMATION
  Report Type: 
  Country: None (occurrence: None)
  Receive Date: 20051215
  Receipt Date: 20051215
  Transmission Date: 20060501
  Serious: Yes (Other)
  Sender: FDA-Public Use
  Company Number: None

PATIENT
  Sex: Female

DRUGS (3)
  1. AMOXICILLIN [Suspect]
     Indication: OTITIS MEDIA
  2. CECLOR [Suspect]
     Indication: OTITIS MEDIA
  3. CEFTIN [Suspect]
     Indication: OTITIS MEDIA

REACTIONS (1)
  - TOOTH DECALCIFICATION [None]
